FAERS Safety Report 26024818 (Version 1)
Quarter: 2025Q4

REPORT INFORMATION
  Report Type: Spontaneous
  Country: JP (occurrence: JP)
  Receive Date: 20251111
  Receipt Date: 20251111
  Transmission Date: 20260117
  Serious: Yes (Other)
  Sender: ALEXION PHARMACEUTICALS
  Company Number: JP-AstraZeneca-CH-00986947A

PATIENT
  Age: 47 Year
  Sex: Female
  Weight: 57.7 kg

DRUGS (1)
  1. CRESTOR [Suspect]
     Active Substance: ROSUVASTATIN CALCIUM
     Dosage: 2.5 MILLIGRAM, QD
     Route: 065

REACTIONS (5)
  - Vertebrobasilar artery dissection [Unknown]
  - Vertebral artery aneurysm [Unknown]
  - Adrenomegaly [Unknown]
  - Primary hyperaldosteronism [Unknown]
  - Hypokalaemia [Unknown]
